FAERS Safety Report 7389249-6 (Version None)
Quarter: 2011Q2

REPORT INFORMATION
  Report Type: 
  Country: None (occurrence: None)
  Receive Date: 20110401
  Receipt Date: 20110325
  Transmission Date: 20111010
  Serious: Yes (Hospitalization, Disabling)
  Sender: FDA-Public Use
  Company Number: HR-BAYER-2011-026983

PATIENT
  Age: 70 Year
  Sex: Male

DRUGS (16)
  1. ALLOPURINOL [Concomitant]
     Dosage: TBL 2X1
  2. WARFARIN [Interacting]
     Indication: ATRIAL FIBRILLATION
     Dosage: UNK
     Route: 048
     Dates: start: 20070101, end: 20100531
  3. CLOPIDOGREL [Interacting]
     Indication: CORONARY ARTERY STENOSIS
     Dosage: UNK
     Route: 048
     Dates: start: 20100402, end: 20100531
  4. ANALGESICS [Concomitant]
  5. FLUID [Concomitant]
  6. UNCODEABLE ^UNCLASSIFIABLE^ [Concomitant]
  7. ELECTROLYTE [Concomitant]
  8. MARIVARIN [Concomitant]
     Dosage: DAILY DOSE .5 DF
  9. ANDOL [Concomitant]
     Dosage: DAILY DOSE 100 MG
  10. UNCODEABLE ^UNCLASSIFIABLE^ [Concomitant]
     Dosage: 1 TBL LARIX + 1/4 TBL KALINUR
  11. ANTIHYPERTENSIVES [Concomitant]
  12. LANITOP [Concomitant]
     Dosage: 1 DF, QD
  13. TERTENSIF [Concomitant]
     Dosage: 1 DF, QD
  14. UNCODEABLE ^UNCLASSIFIABLE^ [Concomitant]
  15. ASPIRIN [Suspect]
     Indication: ATRIAL FIBRILLATION
     Dosage: UNK
     Route: 048
     Dates: end: 20100531
  16. ISOPTIN [Concomitant]
     Dosage: DAILY DOSE 320 MG

REACTIONS (4)
  - SPEECH DISORDER [None]
  - HAEMORRHAGIC CEREBRAL INFARCTION [None]
  - MUSCULAR WEAKNESS [None]
  - URINARY TRACT INFECTION [None]
